FAERS Safety Report 6230839-1 (Version None)
Quarter: 2009Q2

REPORT INFORMATION
  Report Type: 
  Country: None (occurrence: None)
  Receive Date: 20090616
  Receipt Date: 20090605
  Transmission Date: 20091009
  Serious: Yes (Hospitalization, Disabling)
  Sender: FDA-Public Use
  Company Number: US-PFIZER INC-2009225304

PATIENT
  Sex: Female
  Weight: 108.84 kg

DRUGS (9)
  1. ATORVASTATIN CALCIUM [Suspect]
     Indication: BLOOD CHOLESTEROL INCREASED
     Dosage: 40 MG, 1X/DAY
     Route: 048
     Dates: start: 19950101
  2. GLIPIZIDE [Suspect]
     Indication: DIABETES MELLITUS
     Dosage: 5 MG, 2X/DAY
     Route: 048
     Dates: start: 20060401
  3. COREG [Concomitant]
     Dosage: 6.25 MG, 1X/DAY
  4. PREVACID [Concomitant]
     Dosage: 30 MG, 1X/DAY
  5. ALLOPURINOL [Concomitant]
     Dosage: 300 MG, 1X/DAY
  6. BENICAR [Concomitant]
     Dosage: UNK
  7. METFORMIN [Concomitant]
     Dosage: UNK
  8. ADVAIR HFA [Concomitant]
     Dosage: UNK
  9. COMBIVENT [Concomitant]
     Dosage: UNK

REACTIONS (8)
  - BALANCE DISORDER [None]
  - BEDRIDDEN [None]
  - BLOOD GLUCOSE ABNORMAL [None]
  - DYSSTASIA [None]
  - FALL [None]
  - HEAD INJURY [None]
  - RHABDOMYOLYSIS [None]
  - SKIN LACERATION [None]
